FAERS Safety Report 18983162 (Version 1)
Quarter: 2021Q1

REPORT INFORMATION
  Report Type: Spontaneous
  Country: CA (occurrence: CA)
  Receive Date: 20210308
  Receipt Date: 20210308
  Transmission Date: 20210420
  Serious: Yes (Hospitalization)
  Sender: FDA-Public Use
  Company Number: CA-ASTRAZENECA-2021A099042

PATIENT
  Age: 76 Year
  Sex: Female

DRUGS (7)
  1. L?THYROXINE [Concomitant]
     Active Substance: LEVOTHYROXINE
  2. BISOPROLOL [Concomitant]
     Active Substance: BISOPROLOL
  3. ACETYLSALICYLIC ACID [Concomitant]
     Active Substance: ASPIRIN
  4. RISEDRONATE [Concomitant]
     Active Substance: RISEDRONATE SODIUM
  5. ROSUVASTATIN. [Suspect]
     Active Substance: ROSUVASTATIN
     Route: 065
  6. INVOKANA [Suspect]
     Active Substance: CANAGLIFLOZIN
     Route: 065
  7. METFORMIN [Concomitant]
     Active Substance: METFORMIN HYDROCHLORIDE

REACTIONS (4)
  - Rhabdomyolysis [Unknown]
  - Hepatocellular injury [Unknown]
  - Drug interaction [Unknown]
  - Muscle disorder [Unknown]
